FAERS Safety Report 5890937-9 (Version None)
Quarter: 2008Q3

REPORT INFORMATION
  Report Type: 
  Country: None (occurrence: None)
  Receive Date: 20080922
  Receipt Date: 20080912
  Transmission Date: 20090109
  Serious: Yes (Death, Hospitalization)
  Sender: FDA-Public Use
  Company Number: A0734388A

PATIENT
  Age: 52 Year
  Sex: Male
  Weight: 93.2 kg

DRUGS (3)
  1. AVANDIA [Suspect]
     Route: 048
     Dates: start: 19990101, end: 20000101
  2. HEART MEDICATION [Concomitant]
  3. BLOOD PRESSURE MEDICATION [Concomitant]

REACTIONS (4)
  - ANXIETY [None]
  - CARDIAC ARREST [None]
  - HEART INJURY [None]
  - MYOCARDIAL INFARCTION [None]
